FAERS Safety Report 7941249-0 (Version None)
Quarter: 2011Q4

REPORT INFORMATION
  Report Type: 
  Country: None (occurrence: None)
  Receive Date: 20111122
  Receipt Date: 20111109
  Transmission Date: 20120403
  Serious: Yes (Other)
  Sender: FDA-Public Use
  Company Number: 2011P1010211

PATIENT
  Age: 45 Year
  Sex: Female

DRUGS (1)
  1. PHENYTOIN [Suspect]
     Indication: GRAND MAL CONVULSION
     Dosage: 100 MG;TID;

REACTIONS (8)
  - BLOOD SODIUM DECREASED [None]
  - HYPERKERATOSIS [None]
  - DRUG RASH WITH EOSINOPHILIA AND SYSTEMIC SYMPTOMS [None]
  - ABDOMINAL PAIN [None]
  - BLOOD POTASSIUM DECREASED [None]
  - LYMPHADENOPATHY [None]
  - ACANTHOSIS [None]
  - HEPATOSPLENOMEGALY [None]
